FAERS Safety Report 7677818-5 (Version None)
Quarter: 2011Q3

REPORT INFORMATION
  Report Type: 
  Country: None (occurrence: None)
  Receive Date: 20110811
  Receipt Date: 20110801
  Transmission Date: 20111222
  Serious: Yes (Hospitalization)
  Sender: FDA-Public Use
  Company Number: US-JNJFOC-20100201781

PATIENT
  Sex: Male
  Weight: 29 kg

DRUGS (12)
  1. PREDNISONE [Concomitant]
     Route: 048
  2. REMICADE [Suspect]
     Indication: COLITIS ULCERATIVE
     Route: 042
     Dates: start: 20090224
  3. BUDESONIDE [Concomitant]
  4. ANTIBIOTIC [Concomitant]
  5. ANTIBIOTIC [Concomitant]
  6. REMICADE [Suspect]
     Dosage: TOTAL 2 DOSES RECEIVED THUS FAR
     Route: 042
     Dates: start: 20090311, end: 20090311
  7. PROTONIX [Concomitant]
  8. PREDNISONE [Concomitant]
     Route: 048
  9. REMICADE [Suspect]
     Dosage: TOTAL 3 DOSES RECEIVED THUS FAR
     Route: 042
     Dates: start: 20090403, end: 20090403
  10. MESALAMINE [Concomitant]
     Route: 048
  11. METRONIDAZOLE [Concomitant]
  12. MESALAMINE [Concomitant]
     Route: 048

REACTIONS (3)
  - FUNGAEMIA [None]
  - COLITIS ULCERATIVE [None]
  - ENTEROBACTER BACTERAEMIA [None]
